FAERS Safety Report 19558467 (Version 1)
Quarter: 2021Q3

REPORT INFORMATION
  Report Type: Report from Study
  Country: US (occurrence: US)
  Receive Date: 20210714
  Receipt Date: 20210714
  Transmission Date: 20211014
  Serious: Yes (Hospitalization)
  Sender: FDA-Public Use
  Company Number: US-EISAI MEDICAL RESEARCH-EC-2021-096034

PATIENT
  Age: 52 Year
  Sex: Female
  Weight: 49.9 kg

DRUGS (10)
  1. ZYRTEC [Concomitant]
     Active Substance: CETIRIZINE HYDROCHLORIDE
  2. URSODIOL. [Concomitant]
     Active Substance: URSODIOL
  3. FERROUS SULFATE. [Concomitant]
     Active Substance: FERROUS SULFATE
  4. PANTOPRAZOLE SODIUM. [Concomitant]
     Active Substance: PANTOPRAZOLE SODIUM
  5. ZARXIO [Concomitant]
     Active Substance: FILGRASTIM-SNDZ
  6. FUROSEMIDE. [Concomitant]
     Active Substance: FUROSEMIDE
  7. LENVIMA [Suspect]
     Active Substance: LENVATINIB
     Indication: HEPATOCELLULAR CARCINOMA
     Route: 048
     Dates: start: 20180813, end: 202106
  8. ZIEXTENZO [Concomitant]
     Active Substance: PEGFILGRASTIM-BMEZ
  9. RETACRIT [Concomitant]
     Active Substance: EPOETIN ALFA-EPBX
  10. SUCRALFATE. [Concomitant]
     Active Substance: SUCRALFATE

REACTIONS (1)
  - Malaise [Unknown]

NARRATIVE: CASE EVENT DATE: 2021
